FAERS Safety Report 22294912 (Version 17)
Quarter: 2025Q3

REPORT INFORMATION
  Report Type: Report from Study
  Country: US (occurrence: US)
  Receive Date: 20230508
  Receipt Date: 20250730
  Transmission Date: 20251021
  Serious: Yes (Hospitalization, Other)
  Sender: TAKEDA
  Company Number: US-TAKEDA-2023TUS025658

PATIENT
  Age: 41 Year
  Sex: Female
  Weight: 52 kg

DRUGS (31)
  1. HUMAN IMMUNOGLOBULIN G [Suspect]
     Active Substance: HUMAN IMMUNOGLOBULIN G
     Indication: Immunodeficiency common variable
     Dosage: 35 GRAM, Q4WEEKS
     Dates: start: 20230203
  2. HUMAN IMMUNOGLOBULIN G [Suspect]
     Active Substance: HUMAN IMMUNOGLOBULIN G
     Dosage: 35 GRAM, Q4WEEKS
  3. EPINEPHRINE [Concomitant]
     Active Substance: EPINEPHRINE
  4. ACETAMINOPHEN [Concomitant]
     Active Substance: ACETAMINOPHEN
  5. PREDNISONE [Concomitant]
     Active Substance: PREDNISONE
  6. METOPROLOL TARTRATE [Concomitant]
     Active Substance: METOPROLOL TARTRATE
  7. DEXAMETHASONE [Concomitant]
     Active Substance: DEXAMETHASONE
  8. SOLU-CORTEF [Concomitant]
     Active Substance: HYDROCORTISONE SODIUM SUCCINATE
  9. ACETAMINOPHEN\HYDROCODONE [Concomitant]
     Active Substance: ACETAMINOPHEN\HYDROCODONE
  10. METHOCARBAMOL [Concomitant]
     Active Substance: METHOCARBAMOL
  11. HYOSCYAMINE SULFATE [Concomitant]
     Active Substance: HYOSCYAMINE SULFATE
  12. LEVOTHYROXINE [Concomitant]
     Active Substance: LEVOTHYROXINE
  13. SODIUM CHLORIDE [Concomitant]
     Active Substance: SODIUM CHLORIDE
  14. PANTOPRAZOLE SODIUM [Concomitant]
     Active Substance: PANTOPRAZOLE SODIUM
  15. BENADRYL [Concomitant]
     Active Substance: DIPHENHYDRAMINE HYDROCHLORIDE
  16. QUVIVIQ [Concomitant]
     Active Substance: DARIDOREXANT
  17. HYDROXYCHLOROQUINE SULFATE [Concomitant]
     Active Substance: HYDROXYCHLOROQUINE SULFATE
  18. LIDOCAINE [Concomitant]
     Active Substance: LIDOCAINE
  19. ZOLPIDEM TARTRATE [Concomitant]
     Active Substance: ZOLPIDEM TARTRATE
  20. FAMOTIDINE [Concomitant]
     Active Substance: FAMOTIDINE
  21. TOPIRAMATE [Concomitant]
     Active Substance: TOPIRAMATE
  22. HYDROCORTISONE [Concomitant]
     Active Substance: HYDROCORTISONE
  23. DIPHENHYDRAMINE HYDROCHLORIDE [Concomitant]
     Active Substance: DIPHENHYDRAMINE HYDROCHLORIDE
  24. AIMOVIG [Concomitant]
     Active Substance: ERENUMAB-AOOE
  25. HORIZANT [Concomitant]
     Active Substance: GABAPENTIN ENACARBIL
  26. SODIUM CHLORIDE [Concomitant]
     Active Substance: SODIUM CHLORIDE
  27. VITAMIN D3 [Concomitant]
     Active Substance: CHOLECALCIFEROL
  28. AJOVY [Concomitant]
     Active Substance: FREMANEZUMAB-VFRM
  29. DIPHENHYDRAMINE [Concomitant]
     Active Substance: DIPHENHYDRAMINE
  30. HYOSCYAMINE [Concomitant]
     Active Substance: HYOSCYAMINE
  31. SALINE [Concomitant]
     Active Substance: SODIUM CHLORIDE

REACTIONS (22)
  - Gastric ulcer [Unknown]
  - Post procedural complication [Unknown]
  - Infection [Unknown]
  - Electrolyte imbalance [Unknown]
  - Contusion [Unknown]
  - Abdominal pain upper [Unknown]
  - Urinary tract infection [Not Recovered/Not Resolved]
  - Product dose omission issue [Unknown]
  - Wound [Unknown]
  - Limb injury [Not Recovered/Not Resolved]
  - Drug hypersensitivity [Unknown]
  - Sinusitis [Unknown]
  - Insomnia [Unknown]
  - Hot flush [Unknown]
  - Rash [Unknown]
  - Burning sensation [Unknown]
  - Dyspnoea [Unknown]
  - Abdominal pain [Unknown]
  - Headache [Unknown]
  - Pruritus [Unknown]
  - Fatigue [Unknown]
  - Nausea [Unknown]

NARRATIVE: CASE EVENT DATE: 20230427
